FAERS Safety Report 22538926 (Version 1)
Quarter: 2023Q2

REPORT INFORMATION
  Report Type: Spontaneous
  Country: GB (occurrence: GB)
  Receive Date: 20230609
  Receipt Date: 20230609
  Transmission Date: 20230721
  Serious: Yes (Life-Threatening, Hospitalization, Other)
  Sender: FDA-Public Use
  Company Number: GB-AMGEN-GBRSP2023097543

PATIENT
  Age: 30 Year
  Sex: Female

DRUGS (2)
  1. ROMIPLOSTIM [Suspect]
     Active Substance: ROMIPLOSTIM
     Indication: Immune thrombocytopenia
     Dosage: UNK
     Route: 065
  2. Immunoglobulin [Concomitant]
     Dosage: UNK
     Route: 042

REACTIONS (11)
  - Immune thrombocytopenia [Unknown]
  - Postpartum haemorrhage [Unknown]
  - Gestational diabetes [Unknown]
  - Pulmonary haemorrhage [Unknown]
  - Gastrointestinal haemorrhage [Unknown]
  - Haemorrhage intracranial [Unknown]
  - Ophthalmoplegia [Unknown]
  - Renal impairment [Unknown]
  - Pulmonary embolism [Unknown]
  - Maternal exposure during pregnancy [Unknown]
  - Muscular weakness [Unknown]
